FAERS Safety Report 4893774-7 (Version None)
Quarter: 2005Q4

REPORT INFORMATION
  Report Type: 
  Country: None (occurrence: None)
  Receive Date: 20051223
  Receipt Date: 20051127
  Transmission Date: 20060501
  Serious: No
  Sender: FDA-Public Use
  Company Number: 2005PV004956

PATIENT
  Age: 69 Year
  Sex: Female
  Weight: 90.7194 kg

DRUGS (8)
  1. SYMLIN [Suspect]
     Indication: DIABETES MELLITUS NON-INSULIN-DEPENDENT
     Dosage: 60 MCG; TID; SC; SEE IMAGE
     Route: 058
     Dates: start: 20051117, end: 20051120
  2. SYMLIN [Suspect]
     Indication: DIABETES MELLITUS NON-INSULIN-DEPENDENT
     Dosage: 60 MCG; TID; SC; SEE IMAGE
     Route: 058
     Dates: start: 20051127
  3. NOVOLOG [Concomitant]
  4. INSULIN [Concomitant]
  5. LANTUS [Concomitant]
  6. ASPIRIN [Concomitant]
  7. VYTORIN [Concomitant]
  8. NORVASC [Concomitant]

REACTIONS (2)
  - DIZZINESS [None]
  - INJECTION SITE BRUISING [None]
